FAERS Safety Report 10370838 (Version 1)
Quarter: 2014Q3

REPORT INFORMATION
  Report Type: Spontaneous
  Country: US (occurrence: US)
  Receive Date: 20140808
  Receipt Date: 20140808
  Transmission Date: 20150326
  Serious: No
  Sender: FDA-Public Use
  Company Number: US-GLAXOSMITHKLINE-A1047749A

PATIENT
  Age: 67 Year
  Sex: Female

DRUGS (4)
  1. BECONASE AQ [Suspect]
     Active Substance: BECLOMETHASONE DIPROPIONATE MONOHYDRATE
     Indication: NASAL INFLAMMATION
     Route: 045
  2. ESTROGEN [Concomitant]
     Active Substance: ESTRONE\SUS SCROFA OVARY
  3. BECONASE AQ [Suspect]
     Active Substance: BECLOMETHASONE DIPROPIONATE MONOHYDRATE
     Indication: MYCOTIC ALLERGY
     Dates: start: 1980
  4. CALCIUM [Concomitant]
     Active Substance: CALCIUM

REACTIONS (10)
  - Dyspnoea [Unknown]
  - Oxygen saturation decreased [Unknown]
  - Therapeutic response decreased [Unknown]
  - Headache [Unknown]
  - Tooth malformation [Unknown]
  - Underdose [Unknown]
  - Product quality issue [Unknown]
  - Drug ineffective [Unknown]
  - Memory impairment [Unknown]
  - Bruxism [Unknown]
